FAERS Safety Report 8229764-6 (Version None)
Quarter: 2012Q1

REPORT INFORMATION
  Report Type: 
  Country: None (occurrence: None)
  Receive Date: 20120322
  Receipt Date: 20120319
  Transmission Date: 20120608
  Serious: Yes (Hospitalization)
  Sender: FDA-Public Use
  Company Number: NL-ROCHE-1036527

PATIENT
  Sex: Female
  Weight: 68 kg

DRUGS (9)
  1. MABTHERA [Suspect]
     Indication: B-CELL LYMPHOMA
     Dosage: LAST DOSE PRIOR TO SAE: 06/JAN/2012
     Route: 042
     Dates: start: 20120106
  2. DOXORUBICIN HCL [Suspect]
     Indication: B-CELL LYMPHOMA
     Dosage: LAST DOSE PRIOR TO SAE: 06/JAN/2012
     Route: 042
     Dates: start: 20120106
  3. PREDNISONE [Suspect]
     Indication: B-CELL LYMPHOMA
     Dosage: LAST DOSE PRIOR TO SAE: 10/JAN/2012
     Route: 048
     Dates: start: 20120106
  4. CYCLOPHOSPHAMIDE [Suspect]
     Indication: B-CELL LYMPHOMA
     Dosage: LAST DOSE PRIOR TO SAE: 06/JAN/2012
     Route: 042
     Dates: start: 20120106
  5. VINCRISTINE [Suspect]
     Indication: B-CELL LYMPHOMA
     Dosage: LAST DOSE PRIOR TO SAE: 06/JAN/2012
     Route: 042
     Dates: start: 20120106
  6. FILGRASTIM [Suspect]
     Indication: B-CELL LYMPHOMA
     Dosage: LAST DOSE PRIOR TO SAE: 07/JAN/2012
     Route: 058
     Dates: start: 20120107
  7. MEPERIDINE HCL [Concomitant]
     Indication: PAIN
  8. COTRIM [Concomitant]
     Route: 048
  9. ACETAMINOPHEN [Concomitant]
     Indication: PAIN

REACTIONS (1)
  - INTESTINAL FISTULA [None]
